FAERS Safety Report 8852220 (Version 1)
Quarter: 2012Q4

REPORT INFORMATION
  Report Type: Report from Study
  Country: JP (occurrence: JP)
  Receive Date: 20121022
  Receipt Date: 20121022
  Transmission Date: 20130627
  Serious: Yes (Hospitalization, Other)
  Sender: FDA-Public Use
  Company Number: JP-009507513-1210JPN008739

PATIENT
  Age: 60 Year
  Sex: Male
  Weight: 64 kg

DRUGS (5)
  1. PEGINTRON [Suspect]
     Indication: HEPATITIS C
     Dosage: 1.5 Microgram per kilogram, UNK
     Route: 058
     Dates: start: 20120912
  2. REBETOL [Suspect]
     Indication: HEPATITIS C
     Dosage: 800 mg, qd
     Route: 048
     Dates: start: 20120912
  3. TELAVIC [Suspect]
     Indication: HEPATITIS C
     Dosage: 2250 mg, qd
     Route: 048
     Dates: start: 20120912, end: 20121002
  4. TELAVIC [Suspect]
     Dosage: 1500 mg, qd
     Route: 048
     Dates: start: 20121003
  5. AMOBANTES [Concomitant]
     Indication: INSOMNIA
     Dosage: 7.5 mg, qd, formulation: POR
     Route: 048

REACTIONS (2)
  - Hyperuricaemia [Recovering/Resolving]
  - Renal impairment [Not Recovered/Not Resolved]
